FAERS Safety Report 21860048 (Version 1)
Quarter: 2023Q1

REPORT INFORMATION
  Report Type: Spontaneous
  Country: None (occurrence: CA)
  Receive Date: 20230113
  Receipt Date: 20230113
  Transmission Date: 20230418
  Serious: Yes (Hospitalization, Other)
  Sender: FDA-Public Use
  Company Number: CA-B.Braun Medical Inc.-2136699

PATIENT
  Age: 83 Year
  Sex: Female
  Weight: 67 kg

DRUGS (19)
  1. HEPARIN SODIUM IN DEXTROSE [Suspect]
     Active Substance: HEPARIN SODIUM
  2. AMIODARONE HYDROCHLORIDE [Concomitant]
     Active Substance: AMIODARONE HYDROCHLORIDE
  3. ATOVAQUONE [Concomitant]
     Active Substance: ATOVAQUONE
  4. BASAGLAR [Concomitant]
     Active Substance: INSULIN GLARGINE
  5. CALCIUM\VITAMIN D [Concomitant]
     Active Substance: CALCIUM\VITAMIN D
  6. INSULIN NOS [Concomitant]
     Active Substance: INSULIN NOS
  7. LASIX [Concomitant]
     Active Substance: FUROSEMIDE
  8. METOPROLOL [Concomitant]
     Active Substance: METOPROLOL
  9. NORVASC [Concomitant]
     Active Substance: AMLODIPINE BESYLATE
  10. ONGLYZA [Concomitant]
     Active Substance: SAXAGLIPTIN HYDROCHLORIDE
  11. POTASSIUM [Concomitant]
     Active Substance: POTASSIUM
  12. Prednisone, [Concomitant]
  13. Ranitidine, [Concomitant]
  14. Repaglinide, [Concomitant]
  15. Sotalol, [Concomitant]
  16. Spiriva, [Concomitant]
  17. Synthroid, [Concomitant]
  18. VENTOLIN HFA [Concomitant]
     Active Substance: ALBUTEROL SULFATE
  19. Zantac. [Concomitant]

REACTIONS (6)
  - Adrenal insufficiency [Recovering/Resolving]
  - Haemoglobin decreased [Recovering/Resolving]
  - Retroperitoneal haematoma [Recovering/Resolving]
  - Sepsis [Recovering/Resolving]
  - Shock haemorrhagic [Recovering/Resolving]
  - Spontaneous haematoma [Recovering/Resolving]
